FAERS Safety Report 9311876 (Version 2)
Quarter: 2013Q2

REPORT INFORMATION
  Report Type: Spontaneous
  Country: FR (occurrence: FR)
  Receive Date: 20130528
  Receipt Date: 20130614
  Transmission Date: 20140414
  Serious: Yes (Hospitalization)
  Sender: FDA-Public Use
  Company Number: PHHY2013FR051553

PATIENT
  Age: 62 Year
  Sex: Female

DRUGS (5)
  1. AMIODARONE [Suspect]
     Indication: ARRHYTHMIA SUPRAVENTRICULAR
     Dosage: 200 MG 5 DAYS/WEEK
     Dates: end: 2009
  2. ITRACONAZOLE [Interacting]
     Indication: BRONCHOPULMONARY ASPERGILLOSIS ALLERGIC
     Dosage: 200 MG/DAY
  3. BUDESONIDE [Interacting]
     Indication: ASTHMA
     Dosage: 400 UG/DAY
  4. BUDESONIDE [Interacting]
     Indication: RESPIRATORY FAILURE
  5. PREDNISOLONE [Concomitant]
     Indication: RESPIRATORY FAILURE
     Dosage: 20 MG/DAY
     Route: 048

REACTIONS (11)
  - Hyperthyroidism [Unknown]
  - Cushing^s syndrome [Unknown]
  - Thyroiditis [Unknown]
  - Drug interaction [Unknown]
  - Hepatosplenomegaly [Unknown]
  - Collateral circulation [Unknown]
  - Cholestasis [Unknown]
  - Hepatocellular injury [Unknown]
  - Non-alcoholic steatohepatitis [Unknown]
  - Hypoalbuminaemia [Unknown]
  - Hypoglobulinaemia [Unknown]
